FAERS Safety Report 10090041 (Version 1)
Quarter: 2014Q2

REPORT INFORMATION
  Report Type: Spontaneous
  Country: US (occurrence: US)
  Receive Date: 20140421
  Receipt Date: 20140421
  Transmission Date: 20141212
  Serious: Yes (Other)
  Sender: FDA-Public Use
  Company Number: US-SA-2014SA047519

PATIENT
  Age: 43 Year
  Sex: Male

DRUGS (3)
  1. APIDRA SOLOSTAR [Suspect]
     Indication: TYPE 1 DIABETES MELLITUS
     Dosage: START DATE: 3 TO 4 YEARS AGO
     Route: 065
  2. SOLOSTAR [Concomitant]
  3. HUMULIN R [Concomitant]

REACTIONS (1)
  - Convulsion [Unknown]
